FAERS Safety Report 25221886 (Version 2)
Quarter: 2025Q2

REPORT INFORMATION
  Report Type: Spontaneous
  Country: JP (occurrence: JP)
  Receive Date: 20250421
  Receipt Date: 20250423
  Transmission Date: 20250716
  Serious: Yes (Hospitalization, Other)
  Sender: PFIZER
  Company Number: JP-PFIZER INC-2000AP04748

PATIENT
  Age: 69 Year
  Sex: Male

DRUGS (4)
  1. MEROPENEM [Suspect]
     Active Substance: MEROPENEM
     Indication: Prophylaxis
     Route: 042
     Dates: start: 19970509, end: 19970512
  2. PIPERACILLIN [Suspect]
     Active Substance: PIPERACILLIN
     Indication: Prophylaxis
     Route: 042
     Dates: start: 19970506, end: 19970508
  3. PIPERACILLIN [Suspect]
     Active Substance: PIPERACILLIN
     Indication: Urinary tract infection
  4. ALLOPURINOL [Concomitant]
     Active Substance: ALLOPURINOL
     Indication: Hyperuricaemia
     Dosage: 100 MG, DAILY
     Route: 048
     Dates: start: 19970409, end: 19970421

REACTIONS (5)
  - Glomerulonephritis rapidly progressive [Recovered/Resolved]
  - Cutaneous vasculitis [Recovered/Resolved]
  - Skin atrophy [Recovered/Resolved]
  - Eosinophilia [Recovered/Resolved]
  - Blood immunoglobulin E increased [Recovered/Resolved]

NARRATIVE: CASE EVENT DATE: 19970501
